FAERS Safety Report 13299771 (Version 3)
Quarter: 2017Q2

REPORT INFORMATION
  Report Type: Spontaneous
  Country: ES (occurrence: ES)
  Receive Date: 20170306
  Receipt Date: 20170516
  Transmission Date: 20170830
  Serious: Yes (Hospitalization)
  Sender: FDA-Public Use
  Company Number: ES-ROCHE-1897651

PATIENT
  Age: 71 Year
  Sex: Male

DRUGS (7)
  1. COTELLIC [Suspect]
     Active Substance: COBIMETINIB
     Indication: METASTATIC MALIGNANT MELANOMA
     Dosage: DURING 3 WEEKS
     Route: 065
     Dates: start: 20161114
  2. ZELBORAF [Suspect]
     Active Substance: VEMURAFENIB
     Dosage: LEVEL 2
     Route: 065
     Dates: start: 20170303, end: 20170315
  3. ZELBORAF [Suspect]
     Active Substance: VEMURAFENIB
     Indication: METASTATIC MALIGNANT MELANOMA
     Route: 065
     Dates: start: 20161114
  4. ZELBORAF [Suspect]
     Active Substance: VEMURAFENIB
     Dosage: LEVEL 1
     Route: 065
     Dates: start: 20170120
  5. COTELLIC [Suspect]
     Active Substance: COBIMETINIB
     Dosage: LEVEL -2
     Route: 065
     Dates: start: 20170303
  6. COTELLIC [Suspect]
     Active Substance: COBIMETINIB
     Dosage: LEVEL -1
     Route: 065
     Dates: start: 20170120
  7. COTELLIC [Suspect]
     Active Substance: COBIMETINIB
     Route: 065

REACTIONS (4)
  - Dehydration [Recovering/Resolving]
  - Hypertension [Recovered/Resolved]
  - Acute kidney injury [Recovering/Resolving]
  - Hypertension [Recovered/Resolved]

NARRATIVE: CASE EVENT DATE: 201702
